FAERS Safety Report 10417144 (Version 1)
Quarter: 2014Q3

REPORT INFORMATION
  Report Type: Spontaneous
  Country: US (occurrence: US)
  Receive Date: 20140828
  Receipt Date: 20140828
  Transmission Date: 20150326
  Serious: No
  Sender: FDA-Public Use
  Company Number: US-LUNDBECK-DKLU1102563

PATIENT

DRUGS (2)
  1. ONFI [Suspect]
     Active Substance: CLOBAZAM
     Indication: EPILEPSY
  2. MULTIPLE OTHER AEDS [Suspect]
     Active Substance: UNSPECIFIED INGREDIENT
     Indication: EPILEPSY

REACTIONS (2)
  - Viral infection [Unknown]
  - Swelling face [Recovered/Resolved]
